FAERS Safety Report 17192523 (Version 8)
Quarter: 2022Q2

REPORT INFORMATION
  Report Type: Spontaneous
  Country: US (occurrence: US)
  Receive Date: 20191223
  Receipt Date: 20220408
  Transmission Date: 20220721
  Serious: Yes (Hospitalization, Other)
  Sender: FDA-Public Use
  Company Number: US-CATALYST PHARMACEUTICALS, INC-2019CAT00683

PATIENT
  Sex: Female
  Weight: 44.898 kg

DRUGS (15)
  1. FIRDAPSE [Suspect]
     Active Substance: AMIFAMPRIDINE PHOSPHATE
     Indication: Myasthenic syndrome
     Dosage: 20 MG, 4X/DAY
     Route: 048
     Dates: start: 20190424, end: 2019
  2. FIRDAPSE [Suspect]
     Active Substance: AMIFAMPRIDINE PHOSPHATE
     Dosage: 10 MG, 3-4X/DAY
     Route: 048
     Dates: start: 2019, end: 2020
  3. FIRDAPSE [Suspect]
     Active Substance: AMIFAMPRIDINE PHOSPHATE
     Dosage: 10 MG, 2X/DAY
     Route: 048
  4. FIRDAPSE [Suspect]
     Active Substance: AMIFAMPRIDINE PHOSPHATE
     Dosage: 2 TABLETS (20 MG), 4X/DAY
     Route: 048
     Dates: end: 2022
  5. UNSPECIFIED INGREDIENT [Suspect]
     Active Substance: UNSPECIFIED INGREDIENT
  6. OXYCODONE [Concomitant]
     Active Substance: OXYCODONE
     Dosage: 30 MG, EVERY 3 HOURS AS NEEDED
  7. OXYCODONE [Concomitant]
     Active Substance: OXYCODONE
     Dosage: 30 MG, 5X/DAY
  8. CLOZAPINE [Concomitant]
     Active Substance: CLOZAPINE
     Dosage: UNK
     Dates: end: 201912
  9. KEPPRA [Concomitant]
     Active Substance: LEVETIRACETAM
     Dosage: 500 MG, 1X/DAY
  10. KEYTRUDA [Concomitant]
     Active Substance: PEMBROLIZUMAB
  11. FENTANYL [Concomitant]
     Active Substance: FENTANYL
     Dosage: 1 DOSAGE UNITS, EVERY 72 HOURS
     Route: 061
  12. DOCUSATE [Concomitant]
     Active Substance: DOCUSATE
  13. UNSPECIFIED INGREDIENT [Concomitant]
     Active Substance: UNSPECIFIED INGREDIENT
     Dosage: UNK
     Dates: end: 201911
  14. CLONAZEPAM [Concomitant]
     Active Substance: CLONAZEPAM
     Dosage: 100 MG, 1X/DAY
  15. FENTANYL [Concomitant]
     Active Substance: FENTANYL
     Dosage: 75 ?G, 3X/DAY

REACTIONS (12)
  - Food refusal [Not Recovered/Not Resolved]
  - Malignant neoplasm progression [Not Recovered/Not Resolved]
  - Weight decreased [Recovering/Resolving]
  - Stress [Unknown]
  - Decreased appetite [Unknown]
  - Pain [Unknown]
  - Paranoia [Unknown]
  - Confusional state [Unknown]
  - Malnutrition [Unknown]
  - Emotional distress [Not Recovered/Not Resolved]
  - Fear [Unknown]
  - Intentional product use issue [Not Recovered/Not Resolved]

NARRATIVE: CASE EVENT DATE: 20190101
